FAERS Safety Report 10395774 (Version 1)
Quarter: 2014Q1

REPORT INFORMATION
  Report Type: Spontaneous
  Country: US (occurrence: None)
  Receive Date: 20130724
  Receipt Date: 20130724
  Transmission Date: 20141002
  Serious: Yes (Other)
  Sender: FDA-Public Use
  Company Number: PHEH2012US008628

PATIENT
  Age: 85 Year
  Sex: Female
  Weight: 50.8 kg

DRUGS (7)
  1. GLEEVEC (IMATINIB) TABLET, 400MG [Suspect]
     Indication: GASTROINTESTINAL STROMAL TUMOUR
     Route: 048
     Dates: start: 20120322
  2. DIURETICS [Concomitant]
  3. IRON [Concomitant]
  4. CATAPRES [Concomitant]
  5. METALAZONE [Concomitant]
  6. AVAPRO (IRBESARTAN) [Suspect]
  7. SYNTHROID (LEVOTHYROXINE SODIUM) [Concomitant]

REACTIONS (31)
  - White blood cell count decreased [None]
  - Abdominal pain upper [None]
  - Chills [None]
  - Rash pruritic [None]
  - Abdominal pain [None]
  - Weight increased [None]
  - Oedema peripheral [None]
  - Fatigue [None]
  - Stomatitis [None]
  - Diarrhoea [None]
  - Feeling cold [None]
  - Headache [None]
  - Oedema [None]
  - Rash pustular [None]
  - Nausea [None]
  - Abdominal discomfort [None]
  - Cough [None]
  - Dry mouth [None]
  - Dysgeusia [None]
  - Haemoglobin decreased [None]
  - Haematocrit decreased [None]
  - Blood urea increased [None]
  - Blood creatinine increased [None]
  - Vomiting [None]
  - Joint swelling [None]
  - Asthenia [None]
  - Somnolence [None]
  - Alopecia [None]
  - Hypophagia [None]
  - Weight fluctuation [None]
  - Balance disorder [None]
